FAERS Safety Report 16460793 (Version 1)
Quarter: 2019Q2

REPORT INFORMATION
  Report Type: Spontaneous
  Country: US (occurrence: US)
  Receive Date: 20190620
  Receipt Date: 20190620
  Transmission Date: 20190711
  Serious: Yes (Hospitalization)
  Sender: FDA-Public Use
  Company Number: 263095 (I)

PATIENT
  Sex: Female

DRUGS (1)
  1. EXTRA PAIN RELIEF [Suspect]
     Active Substance: ACETAMINOPHEN\ASPIRIN\CAFFEINE
     Indication: PAIN
     Route: 048

REACTIONS (1)
  - Abdominal pain upper [None]
